FAERS Safety Report 4625586-3 (Version None)
Quarter: 2005Q1

REPORT INFORMATION
  Report Type: 
  Country: None (occurrence: None)
  Receive Date: 20050331
  Receipt Date: 20050331
  Transmission Date: 20050727
  Serious: Yes (Other)
  Sender: FDA-Public Use
  Company Number: None

PATIENT
  Age: 3 Month
  Sex: Female
  Weight: 6.1 kg

DRUGS (1)
  1. AMOXICILLIN [Suspect]
     Indication: CONJUNCTIVITIS
     Dosage: 2.5ML BID PO
     Route: 048
     Dates: start: 20050323, end: 20050330

REACTIONS (1)
  - RASH GENERALISED [None]
